FAERS Safety Report 18564836 (Version 2)
Quarter: 2021Q1

REPORT INFORMATION
  Report Type: Report from Study
  Country: US (occurrence: US)
  Receive Date: 20201201
  Receipt Date: 20210115
  Transmission Date: 20210419
  Serious: Yes (Death, Hospitalization)
  Sender: FDA-Public Use
  Company Number: NVSC2020US320014

PATIENT
  Sex: Male
  Weight: 64.4 kg

DRUGS (1)
  1. ENTRESTO [Suspect]
     Active Substance: SACUBITRIL\VALSARTAN
     Indication: CARDIAC FAILURE CONGESTIVE
     Dosage: 50 MG (24?26 MG), BID
     Route: 048
     Dates: start: 20180721

REACTIONS (2)
  - Hypertension [Fatal]
  - Arteriosclerosis coronary artery [Fatal]
